FAERS Safety Report 24320573 (Version 1)
Quarter: 2024Q3

REPORT INFORMATION
  Report Type: Report from Study
  Country: US (occurrence: US)
  Receive Date: 20240915
  Receipt Date: 20240915
  Transmission Date: 20241017
  Serious: Yes (Other)
  Sender: ABBVIE
  Company Number: US-ABBVIE-5920916

PATIENT
  Sex: Female

DRUGS (2)
  1. SKYRIZI [Suspect]
     Active Substance: RISANKIZUMAB-RZAA
     Indication: Psoriasis
     Dosage: INJECT 150MG (1 INJECTOR) SUBCUTANEOUSLY EVERY 12 WEEKS
     Route: 058
     Dates: start: 202306, end: 2024
  2. SKYRIZI [Suspect]
     Active Substance: RISANKIZUMAB-RZAA
     Dosage: FIRST ADMIN 2024 ?INJECT 150MG (1 INJECTOR) SUBCUTANEOUSLY EVERY 12 WEEKS
     Route: 058

REACTIONS (1)
  - Hip fracture [Unknown]
